FAERS Safety Report 7898420-6 (Version None)
Quarter: 2011Q4

REPORT INFORMATION
  Report Type: 
  Country: None (occurrence: None)
  Receive Date: 20111107
  Receipt Date: 20111028
  Transmission Date: 20120403
  Serious: Yes (Death)
  Sender: FDA-Public Use
  Company Number: FR-ACTELION-A-CH2011-55496

PATIENT
  Age: 82 Year
  Sex: Female

DRUGS (6)
  1. TRACLEER [Suspect]
     Indication: PULMONARY ARTERIAL HYPERTENSION
     Dosage: 125 MG, BID
     Route: 048
     Dates: start: 20100801
  2. CITALOPRAM HYDROBROMIDE [Concomitant]
  3. OXYGEN [Concomitant]
  4. ATARAX [Concomitant]
  5. PREVISCAN [Concomitant]
  6. REVATIO [Concomitant]

REACTIONS (6)
  - LUNG INFECTION [None]
  - LIVER FUNCTION TEST ABNORMAL [None]
  - ASPARTATE AMINOTRANSFERASE INCREASED [None]
  - OXYGEN SATURATION DECREASED [None]
  - ALANINE AMINOTRANSFERASE INCREASED [None]
  - MULTI-ORGAN DISORDER [None]
